FAERS Safety Report 19279730 (Version 3)
Quarter: 2021Q2

REPORT INFORMATION
  Report Type: Report from Study
  Country: KR (occurrence: KR)
  Receive Date: 20210520
  Receipt Date: 20210610
  Transmission Date: 20210717
  Serious: Yes (Death, Hospitalization)
  Sender: FDA-Public Use
  Company Number: KR-KARYOPHARM-2021KPT000598

PATIENT
  Age: 70 Year
  Sex: Female

DRUGS (13)
  1. GLUPA [Concomitant]
     Active Substance: METFORMIN HYDROCHLORIDE
     Indication: DIABETES MELLITUS
     Dosage: 500 MG, QD
     Dates: end: 20210406
  2. DEXAMETHASONE. [Concomitant]
     Active Substance: DEXAMETHASONE
     Indication: PLASMA CELL MYELOMA
     Dosage: 20 MG, WEEKLY
     Route: 042
  3. DEXAMETHASONE. [Concomitant]
     Active Substance: DEXAMETHASONE
     Dosage: 20 MG, WEEKLY
     Route: 048
  4. KYTRIL [Concomitant]
     Active Substance: GRANISETRON HYDROCHLORIDE
     Indication: ANTIEMETIC SUPPORTIVE CARE
     Dosage: 3 MG, DAY 1, 8, 15, 22
  5. SEPTRIN [Concomitant]
     Active Substance: SULFAMETHOXAZOLE\TRIMETHOPRIM
     Indication: ANTIFUNGAL PROPHYLAXIS
     Dosage: 480 MG, QD
     Dates: start: 20200825, end: 20210406
  6. CELEBREX [Concomitant]
     Active Substance: CELECOXIB
     Indication: PAIN MANAGEMENT
     Dosage: 100 MG, BID
     Dates: start: 20201005, end: 20210406
  7. SELINEXOR [Suspect]
     Active Substance: SELINEXOR
     Indication: PLASMA CELL MYELOMA
     Dosage: 100 MG, WEEKLY, ORAL
     Route: 048
     Dates: start: 20210323
  8. SELINEXOR [Suspect]
     Active Substance: SELINEXOR
     Dosage: 80 MG, WEEKLY
     Route: 048
     Dates: start: 20210422
  9. SOLONDO [Concomitant]
     Active Substance: PREDNISOLONE
     Indication: PLASMA CELL MYELOMA
     Dosage: 7.5 MG, QD
     Dates: start: 20200803, end: 20210406
  10. GASTER [Concomitant]
     Active Substance: FAMOTIDINE
     Indication: DYSPEPSIA
     Dosage: 20 MG, BID
     Dates: start: 20200803, end: 20210406
  11. IXAZOMIB [Concomitant]
     Active Substance: IXAZOMIB
     Indication: PLASMA CELL MYELOMA
     Dosage: UNK
  12. OLANZAPINE. [Concomitant]
     Active Substance: OLANZAPINE
     Indication: ANTIEMETIC SUPPORTIVE CARE
     Dosage: 2.5 MG, QD
  13. TARGIN [Concomitant]
     Active Substance: NALOXONE HYDROCHLORIDE\OXYCODONE HYDROCHLORIDE
     Indication: PAIN MANAGEMENT
     Dosage: 20 MG, BID
     Dates: start: 20200925, end: 20210406

REACTIONS (3)
  - Neutropenic colitis [Fatal]
  - Neutropenia [Recovered/Resolved]
  - Pneumonia [Unknown]

NARRATIVE: CASE EVENT DATE: 20210406
